FAERS Safety Report 8387669-4 (Version None)
Quarter: 2012Q2

REPORT INFORMATION
  Report Type: 
  Country: None (occurrence: None)
  Receive Date: 20120525
  Receipt Date: 20120522
  Transmission Date: 20120825
  Serious: Yes (Other)
  Sender: FDA-Public Use
  Company Number: US-PFIZER INC-2012123889

PATIENT
  Sex: Female

DRUGS (1)
  1. GEODON [Suspect]
     Dosage: 40MG AND 80MG, UNK
     Route: 048

REACTIONS (5)
  - INCORRECT DOSE ADMINISTERED [None]
  - HEAD TITUBATION [None]
  - DIPLEGIA [None]
  - TREMOR [None]
  - FAECAL INCONTINENCE [None]
